FAERS Safety Report 13038019 (Version 1)
Quarter: 2016Q4

REPORT INFORMATION
  Report Type: Spontaneous
  Country: US (occurrence: US)
  Receive Date: 20161212
  Receipt Date: 20161212
  Transmission Date: 20170207
  Serious: Yes (Disabling, Other)
  Sender: FDA-Public Use
  Company Number: None

PATIENT
  Age: 41 Year
  Sex: Female
  Weight: 117.94 kg

DRUGS (3)
  1. PAXIL [Concomitant]
     Active Substance: PAROXETINE HYDROCHLORIDE
  2. PROTONIX [Concomitant]
     Active Substance: PANTOPRAZOLE SODIUM
  3. GEODON [Suspect]
     Active Substance: ZIPRASIDONE HYDROCHLORIDE\ZIPRASIDONE MESYLATE
     Indication: MENTAL DISORDER
     Dosage: ONE IN AFTERNOON?ONE WITH DINNER
     Route: 048
     Dates: start: 2007, end: 201404

REACTIONS (3)
  - Abdominal pain [None]
  - Gastrooesophageal reflux disease [None]
  - Vomiting [None]

NARRATIVE: CASE EVENT DATE: 20131201
